FAERS Safety Report 6607895-1 (Version None)
Quarter: 2010Q1

REPORT INFORMATION
  Report Type: 
  Country: None (occurrence: None)
  Receive Date: 20100301
  Receipt Date: 20100222
  Transmission Date: 20100710
  Serious: Yes (Death)
  Sender: FDA-Public Use
  Company Number: CHPA2010US03731

PATIENT
  Age: 73 Year
  Sex: Female

DRUGS (7)
  1. ACETYLSALICYLIC ACID SRT [Suspect]
     Route: 048
  2. DOXEPIN HCL [Suspect]
     Route: 048
  3. ALPRAZOLAM [Suspect]
     Route: 048
  4. ^ACETAMINOPHEN, BUTALBITAL, CAFFEINE^ [Suspect]
     Route: 048
  5. IRBESARTAN [Suspect]
     Route: 048
  6. EZETIMIBE [Suspect]
     Route: 048
  7. CLOPIDOGREL [Suspect]
     Route: 048

REACTIONS (1)
  - COMPLETED SUICIDE [None]
